FAERS Safety Report 9913640 (Version 1)
Quarter: 2014Q1

REPORT INFORMATION
  Report Type: Spontaneous
  Country: US (occurrence: None)
  Receive Date: 20140214
  Receipt Date: 20140214
  Transmission Date: 20141002
  Serious: Yes (Death)
  Sender: FDA-Public Use
  Company Number: AUR-APL-2014-01419

PATIENT
  Age: 53 Year
  Sex: Female

DRUGS (8)
  1. QUETIAPINE (QUETIAPINE) [Suspect]
     Route: 048
  2. ZOLPIDEM (ZOLPIDEM) [Suspect]
  3. FENTANYL (FENTANYL) [Suspect]
  4. HYDROCODONE (HYDROCODONE) [Suspect]
  5. DIAZEPAM (DIAZEPAM) [Suspect]
  6. TRAZODONE (TRAZODONE) [Suspect]
  7. COCAINE (COCAINE) [Suspect]
  8. ACETAMINOPHEN (PARACETAMOL) [Suspect]

REACTIONS (4)
  - Completed suicide [None]
  - Exposure via ingestion [None]
  - Toxicity to various agents [None]
  - Intentional self-injury [None]
